FAERS Safety Report 7783283-X (Version None)
Quarter: 2011Q3

REPORT INFORMATION
  Report Type: 
  Country: None (occurrence: None)
  Receive Date: 20110928
  Receipt Date: 20110920
  Transmission Date: 20111222
  Serious: Yes (Hospitalization)
  Sender: FDA-Public Use
  Company Number: US-JNJFOC-20110901738

PATIENT
  Sex: Male
  Weight: 68.04 kg

DRUGS (13)
  1. ASPIRIN [Concomitant]
     Indication: CARDIAC DISORDER
     Route: 048
  2. DURAGESIC-100 [Suspect]
     Route: 062
     Dates: start: 20090101, end: 20110801
  3. MIGRANAL [Concomitant]
     Indication: MIGRAINE
     Route: 048
     Dates: start: 19900101
  4. TERAZOSIN HCL [Concomitant]
     Indication: RENAL DISORDER
     Route: 048
  5. HYDROCODONE BITARTRATE [Concomitant]
     Indication: PAIN
     Route: 048
  6. METOPROLOL TARTRATE [Concomitant]
     Indication: BLOOD PRESSURE
     Route: 048
     Dates: start: 19990101
  7. DURAGESIC-100 [Suspect]
     Indication: BACK PAIN
     Route: 062
     Dates: start: 20110801
  8. TRAZODONE HYDROCHLORIDE [Concomitant]
     Route: 048
  9. DURAGESIC-100 [Suspect]
     Route: 062
     Dates: start: 20050101, end: 20090101
  10. INHALER ALBUTEROL [Concomitant]
     Indication: CHRONIC OBSTRUCTIVE PULMONARY DISEASE
     Route: 055
  11. INHALER FOR COPD [Concomitant]
     Indication: CHRONIC OBSTRUCTIVE PULMONARY DISEASE
     Route: 055
  12. QUININE SULFATE [Concomitant]
     Indication: MUSCLE SPASMS
     Route: 048
  13. XANAX [Concomitant]
     Indication: ANXIETY
     Route: 048

REACTIONS (6)
  - INADEQUATE ANALGESIA [None]
  - HYPERSOMNIA [None]
  - GASTROOESOPHAGEAL REFLUX DISEASE [None]
  - ARTERIAL OCCLUSIVE DISEASE [None]
  - GASTRIC DISORDER [None]
  - PRODUCT ADHESION ISSUE [None]
